FAERS Safety Report 10050117 (Version 1)
Quarter: 2014Q1

REPORT INFORMATION
  Report Type: Spontaneous
  Country: US (occurrence: None)
  Receive Date: 20140331
  Receipt Date: 20140331
  Transmission Date: 20141002
  Serious: Yes (Hospitalization, Other)
  Sender: FDA-Public Use
  Company Number: None

PATIENT
  Age: 22 Year
  Sex: Female
  Weight: 41.73 kg

DRUGS (1)
  1. DEPO -PROVERA [Suspect]
     Indication: CONTRACEPTION
     Dosage: 2 SHOTS OR DOSES, SHOT 1X3MOS, INTO THE MUSCLE

REACTIONS (16)
  - Nausea [None]
  - Gastrooesophageal reflux disease [None]
  - Bone density decreased [None]
  - Sensation of foreign body [None]
  - Pain [None]
  - Pyrexia [None]
  - Loss of consciousness [None]
  - Dehydration [None]
  - Abdominal pain upper [None]
  - Nightmare [None]
  - Chills [None]
  - Hyperhidrosis [None]
  - Asthenia [None]
  - Dizziness [None]
  - Weight decreased [None]
  - Impaired work ability [None]
